FAERS Safety Report 7955335-2 (Version None)
Quarter: 2011Q4

REPORT INFORMATION
  Report Type: 
  Country: None (occurrence: None)
  Receive Date: 20111202
  Receipt Date: 20111122
  Transmission Date: 20120403
  Serious: Yes (Other)
  Sender: FDA-Public Use
  Company Number: DE-ELI_LILLY_AND_COMPANY-DE201111006638

PATIENT
  Age: 54 Year
  Sex: Male

DRUGS (1)
  1. HUMALOG [Suspect]
     Indication: TYPE 2 DIABETES MELLITUS
     Dosage: UNK, PRN
     Route: 058
     Dates: start: 20100801

REACTIONS (7)
  - CHILLS [None]
  - INJECTION SITE PAIN [None]
  - GAIT DISTURBANCE [None]
  - UMBILICAL HERNIA REPAIR [None]
  - INJECTION SITE ERYTHEMA [None]
  - FEELING COLD [None]
  - DIZZINESS [None]
